FAERS Safety Report 23818077 (Version 1)
Quarter: 2024Q2

REPORT INFORMATION
  Report Type: Other
  Country: US (occurrence: US)
  Receive Date: 20240506
  Receipt Date: 20240506
  Transmission Date: 20240716
  Serious: Yes (Other)
  Sender: FDA-Public Use
  Company Number: US-DEXPHARM-2024-1161

PATIENT
  Age: 6 Year
  Sex: Female

DRUGS (5)
  1. DEXAMETHASONE [Interacting]
     Active Substance: DEXAMETHASONE
     Dosage: DUE TO SEVERE NAUSEA, SHE WAS SWITCHED TO DEXAMETHASONE 5 MG/M2/DAY (245 MG/M2/DAY DOSE EQUIVALEN...
  2. ETOPOSIDE [Concomitant]
     Active Substance: ETOPOSIDE
  3. CISPLATIN [Concomitant]
     Active Substance: CISPLATIN
  4. DOXORUBICIN [Concomitant]
     Active Substance: DOXORUBICIN
  5. MITOTANE [Interacting]
     Active Substance: MITOTANE

REACTIONS (4)
  - Hypotension [Unknown]
  - Nausea [Unknown]
  - Vomiting [Unknown]
  - Drug interaction [Unknown]
